FAERS Safety Report 5809716-3 (Version None)
Quarter: 2008Q3

REPORT INFORMATION
  Report Type: 
  Country: None (occurrence: None)
  Receive Date: 20080711
  Receipt Date: 20080711
  Transmission Date: 20090109
  Serious: Yes (Hospitalization)
  Sender: FDA-Public Use
  Company Number: None

PATIENT
  Age: 6 Year
  Sex: Male
  Weight: 23.2015 kg

DRUGS (9)
  1. BORTEZOMIB [Suspect]
     Indication: NEUROBLASTOMA
     Dosage: 1.04MG, D1,4,8,11, IV MAY + JUNE, 4DAYS/MONTH
     Route: 042
  2. IRINOTECAN HCL [Suspect]
     Dosage: 30MG D1-5 CYCLE, IV MAY + JUNE, 5 DAYS/MONTH
     Route: 042
  3. CEFPODOXIME PROXETIL [Concomitant]
  4. HEPARIN [Concomitant]
  5. IMODIUM [Concomitant]
  6. OXYCODON [Concomitant]
  7. POTASSIUM IODIDE [Concomitant]
  8. PRILOSEC [Concomitant]
  9. ZOFRAN [Concomitant]

REACTIONS (2)
  - NEUTROPENIA [None]
  - PYREXIA [None]
